FAERS Safety Report 24090922 (Version 1)
Quarter: 2024Q3

REPORT INFORMATION
  Report Type: Report from Study
  Country: US (occurrence: US)
  Receive Date: 20240715
  Receipt Date: 20240715
  Transmission Date: 20241016
  Serious: Yes (Other)
  Sender: MYLAN
  Company Number: US-MYLANLABS-2024M1065391

PATIENT
  Sex: Female
  Weight: 68.03 kg

DRUGS (1)
  1. GLATIRAMER ACETATE [Suspect]
     Active Substance: GLATIRAMER ACETATE
     Indication: Multiple sclerosis
     Dosage: 40 MILLIGRAM, 3XW, (THREE TIMES A WEEK)
     Route: 058

REACTIONS (7)
  - Paralysis [Recovered/Resolved]
  - Gait disturbance [Unknown]
  - Dysgeusia [Recovered/Resolved]
  - Back pain [Recovered/Resolved]
  - Dyspnoea [Recovered/Resolved]
  - Injection site haemorrhage [Unknown]
  - Wrong device used [Unknown]
